FAERS Safety Report 10086854 (Version 3)
Quarter: 2014Q2

REPORT INFORMATION
  Report Type: Spontaneous
  Country: BR (occurrence: BR)
  Receive Date: 20140418
  Receipt Date: 20140610
  Transmission Date: 20141212
  Serious: Yes (Other)
  Sender: FDA-Public Use
  Company Number: BR-BAXTER-2014BAX018616

PATIENT
  Age: 6 Year
  Sex: 0
  Weight: 30 kg

DRUGS (3)
  1. ADVATE [Suspect]
     Indication: PROPHYLAXIS
     Route: 065
  2. ADVATE [Suspect]
     Route: 065
  3. ADVATE [Suspect]
     Indication: PROPHYLAXIS
     Route: 065

REACTIONS (3)
  - Drug ineffective [Unknown]
  - Haemarthrosis [Not Recovered/Not Resolved]
  - Haemarthrosis [Not Recovered/Not Resolved]
